FAERS Safety Report 5500817-6 (Version None)
Quarter: 2007Q4

REPORT INFORMATION
  Report Type: 
  Country: None (occurrence: None)
  Receive Date: 20071029
  Receipt Date: 20071023
  Transmission Date: 20080405
  Serious: Yes (Other)
  Sender: FDA-Public Use
  Company Number: B0458079A

PATIENT
  Age: 2 Year
  Sex: Female
  Weight: 11 kg

DRUGS (6)
  1. AMOXICILLIN + CLAVULANATE POTASSIUM [Suspect]
     Indication: OTITIS MEDIA
     Dosage: 4.4G PER DAY
     Route: 048
     Dates: start: 20070206, end: 20070206
  2. LEBENIN [Concomitant]
     Route: 048
  3. ASVERIN [Concomitant]
     Route: 048
  4. PERIACTIN [Concomitant]
     Route: 048
  5. MUCODYNE [Concomitant]
     Route: 048
  6. CEFDINIR [Concomitant]

REACTIONS (5)
  - ACCIDENTAL OVERDOSE [None]
  - BLOOD ALKALINE PHOSPHATASE INCREASED [None]
  - DIARRHOEA [None]
  - PYREXIA [None]
  - STREPTOCOCCAL INFECTION [None]
